FAERS Safety Report 16700149 (Version 1)
Quarter: 2019Q3

REPORT INFORMATION
  Report Type: Spontaneous
  Country: DE (occurrence: DE)
  Receive Date: 20190813
  Receipt Date: 20190813
  Transmission Date: 20191004
  Serious: Yes (Other)
  Sender: FDA-Public Use
  Company Number: PHHY2019DE186246

PATIENT
  Age: 77 Year
  Sex: Female

DRUGS (1)
  1. DIOVAN [Suspect]
     Active Substance: VALSARTAN
     Indication: PRODUCT USED FOR UNKNOWN INDICATION
     Dosage: 2 DF, QD
     Route: 065

REACTIONS (6)
  - Breast cancer [Unknown]
  - Renal failure [Unknown]
  - Oxygen saturation decreased [Unknown]
  - Hepatic steatosis [Unknown]
  - Extrasystoles [Unknown]
  - Hypotension [Unknown]
